FAERS Safety Report 5310351-4 (Version None)
Quarter: 2007Q2

REPORT INFORMATION
  Report Type: 
  Country: None (occurrence: None)
  Receive Date: 20070423
  Receipt Date: 20070312
  Transmission Date: 20071010
  Serious: Yes (Hospitalization)
  Sender: FDA-Public Use
  Company Number: 6031214

PATIENT
  Age: 50 Year
  Sex: Male

DRUGS (4)
  1. AMLODIPINE [Suspect]
     Indication: ANGINA PECTORIS
     Dosage: 10 MG (10 MG, 1 IN 1 D)
  2. DICLOFENAC SODIUM (DICLOFENAC) [Suspect]
     Indication: OSTEOARTHRITIS
     Dosage: (75 MG)
  3. ATENOLOL [Suspect]
     Indication: ANGINA PECTORIS
     Dosage: (50 MG)
  4. DICLOFENAC (DICLOFENAC) [Suspect]
     Indication: OSTEOARTHRITIS
     Dosage: (3, 75MG)

REACTIONS (8)
  - ACCIDENTAL OVERDOSE [None]
  - CIRCULATORY COLLAPSE [None]
  - DRUG TOXICITY [None]
  - ELECTROCARDIOGRAM ABNORMAL [None]
  - HYPOTENSION [None]
  - METABOLIC ACIDOSIS [None]
  - NEPHROPATHY TOXIC [None]
  - RENAL FAILURE ACUTE [None]
